FAERS Safety Report 8300498 (Version 2)
Quarter: 2012Q4

REPORT INFORMATION
  Report Type: 
  Country: US (occurrence: US)
  Receive Date: 20111219
  Receipt Date: 20120925
  Transmission Date: 20130627
  Serious: Yes (Other)
  Sender: FDA-Public Use
  Company Number: US-PERRIGO-11US011019

PATIENT
  Age: 38 Year
  Sex: Male
  Weight: 70.3 kg

DRUGS (1)
  1. LORATADINE 10 MG 612 [Suspect]
     Indication: SEASONAL ALLERGY
     Dosage: 10 mg, qd
     Route: 048
     Dates: start: 20111016, end: 20111016

REACTIONS (3)
  - Vomiting [Recovered/Resolved]
  - Expired drug administered [Recovered/Resolved]
  - Somnolence [Recovered/Resolved]
